FAERS Safety Report 23178426 (Version 2)
Quarter: 2024Q1

REPORT INFORMATION
  Report Type: Report from Study
  Country: US (occurrence: US)
  Receive Date: 20231113
  Receipt Date: 20240122
  Transmission Date: 20240410
  Serious: Yes (Other)
  Sender: FDA-Public Use
  Company Number: US-Eisai Medical Research-EC-2023-136324

PATIENT
  Age: 61 Year
  Sex: Female

DRUGS (5)
  1. LENVIMA [Suspect]
     Active Substance: LENVATINIB
     Indication: Thyroid cancer
     Route: 048
     Dates: end: 20230321
  2. LENVIMA [Suspect]
     Active Substance: LENVATINIB
     Dosage: MEDICATION ON HOLD FOR A WEEK FOR RADIATION
     Route: 048
     Dates: start: 20230404, end: 202305
  3. LENVIMA [Suspect]
     Active Substance: LENVATINIB
     Dosage: THERAPY STOPPED SOMEWHERE IN --2023
     Route: 048
     Dates: start: 202305
  4. LENVIMA [Suspect]
     Active Substance: LENVATINIB
     Dosage: THERAPY STOPPED SOMEWHERE IN --2023
     Route: 048
     Dates: start: 2023
  5. LENVIMA [Suspect]
     Active Substance: LENVATINIB
     Route: 048
     Dates: start: 2023

REACTIONS (22)
  - Electrocardiogram QT prolonged [Recovered/Resolved]
  - Malignant neoplasm progression [Unknown]
  - Stomatitis [Not Recovered/Not Resolved]
  - Skin exfoliation [Not Recovered/Not Resolved]
  - Pain in extremity [Unknown]
  - Dry skin [Unknown]
  - Cough [Not Recovered/Not Resolved]
  - Fatigue [Not Recovered/Not Resolved]
  - Arthralgia [Not Recovered/Not Resolved]
  - Decreased appetite [Not Recovered/Not Resolved]
  - Glossitis [Not Recovered/Not Resolved]
  - Blood pressure measurement [Not Recovered/Not Resolved]
  - Myalgia [Unknown]
  - Productive cough [Unknown]
  - Oral pain [Unknown]
  - Palmar-plantar erythrodysaesthesia syndrome [Unknown]
  - Pain [Not Recovered/Not Resolved]
  - Blister [Unknown]
  - Contusion [Unknown]
  - Constipation [Unknown]
  - Nausea [Unknown]
  - Vomiting [Unknown]

NARRATIVE: CASE EVENT DATE: 20230101
